FAERS Safety Report 6889846-8 (Version None)
Quarter: 2010Q3

REPORT INFORMATION
  Report Type: 
  Country: None (occurrence: None)
  Receive Date: 20100730
  Receipt Date: 20080522
  Transmission Date: 20110219
  Serious: No
  Sender: FDA-Public Use
  Company Number: US-PFIZER INC-2008012339

PATIENT
  Sex: Female
  Weight: 80.29 kg

DRUGS (6)
  1. LIPITOR [Suspect]
     Indication: HYPERLIPIDAEMIA
     Dates: start: 20070601
  2. LIPITOR [Suspect]
     Indication: CORONARY ARTERY DISEASE
  3. VENLAFAXINE HYDROCHLORIDE [Concomitant]
  4. TOPROL-XL [Concomitant]
  5. ZESTRIL [Concomitant]
  6. PLAVIX [Concomitant]

REACTIONS (1)
  - AMNESIA [None]
